FAERS Safety Report 6696509-0 (Version None)
Quarter: 2010Q2

REPORT INFORMATION
  Report Type: 
  Country: None (occurrence: None)
  Receive Date: 20100426
  Receipt Date: 20100422
  Transmission Date: 20101027
  Serious: Yes (Life-Threatening, Hospitalization)
  Sender: FDA-Public Use
  Company Number: FR-JNJFOC-20100405339

PATIENT
  Sex: Male

DRUGS (9)
  1. REMINYL [Suspect]
     Indication: DEMENTIA ALZHEIMER'S TYPE
     Route: 065
  2. REMINYL [Suspect]
     Route: 065
  3. DOXAZOSIN [Concomitant]
     Indication: BENIGN PROSTATIC HYPERPLASIA
     Route: 048
  4. TANAKAN [Concomitant]
     Indication: VERTIGO
     Route: 048
  5. TANGANIL [Concomitant]
     Indication: VERTIGO
     Route: 048
  6. KARDEGIC [Concomitant]
     Indication: CARDIOVASCULAR EVENT PROPHYLAXIS
     Route: 048
  7. LOXEN [Concomitant]
     Indication: HYPERTENSION
     Route: 048
  8. LARGACTIL [Concomitant]
     Indication: DELIRIUM
     Route: 048
  9. TRIMETAZIDINE [Concomitant]
     Indication: VISUAL ACUITY REDUCED
     Route: 048

REACTIONS (1)
  - ISCHAEMIC STROKE [None]
